FAERS Safety Report 7327136-X (Version None)
Quarter: 2011Q1

REPORT INFORMATION
  Report Type: 
  Country: None (occurrence: None)
  Receive Date: 20110222
  Receipt Date: 20110207
  Transmission Date: 20110831
  Serious: Yes (Other)
  Sender: FDA-Public Use
  Company Number: 2010AL002944

PATIENT
  Age: 59 Year
  Sex: Female

DRUGS (14)
  1. DITROPAN [Concomitant]
  2. FOSAMAX [Concomitant]
  3. PREV MEDS [Concomitant]
  4. METOCLOPRAMIDE [Suspect]
     Dosage: 10 MG, PO
     Route: 048
     Dates: start: 19990101, end: 20080801
  5. LOTENSIN [Concomitant]
  6. POTASSIUM CHLORIDE [Concomitant]
  7. CATAPRES [Concomitant]
  8. HYDROCHLOROTHIAZIDE [Concomitant]
  9. TOLTERODINE TARTRATE [Concomitant]
  10. FENOFIBRATE [Concomitant]
  11. PREVACID [Concomitant]
  12. PREMARIN [Concomitant]
  13. LEVOTHYROXINE [Concomitant]
  14. OMEPRAZOLE [Concomitant]

REACTIONS (12)
  - OSTEOPOROSIS [None]
  - DYSTONIA [None]
  - OBESITY [None]
  - TARDIVE DYSKINESIA [None]
  - EXTRAPYRAMIDAL DISORDER [None]
  - EMOTIONAL DISORDER [None]
  - HYPERTHYROIDISM [None]
  - HYPERTONIC BLADDER [None]
  - NARCOLEPSY [None]
  - ECONOMIC PROBLEM [None]
  - INCORRECT DRUG ADMINISTRATION DURATION [None]
  - INJURY [None]
